FAERS Safety Report 6510359-7 (Version None)
Quarter: 2009Q4

REPORT INFORMATION
  Report Type: 
  Country: None (occurrence: None)
  Receive Date: 20091222
  Receipt Date: 20091006
  Transmission Date: 20100525
  Serious: No
  Sender: FDA-Public Use
  Company Number: US-ASTRAZENECA-2009SE18253

PATIENT
  Age: 45 Year
  Sex: Female

DRUGS (7)
  1. CRESTOR [Suspect]
     Route: 048
     Dates: start: 20090101
  2. PRILOSEC OTC [Concomitant]
  3. TRILIPIX [Concomitant]
  4. SYNTHROID [Concomitant]
  5. CELEXA [Concomitant]
     Indication: DEPRESSION
  6. XANAX [Concomitant]
     Indication: ANXIETY
  7. LORTAB [Concomitant]
     Indication: PAIN

REACTIONS (4)
  - HEADACHE [None]
  - MICTURITION DISORDER [None]
  - MYALGIA [None]
  - SWOLLEN TONGUE [None]
